FAERS Safety Report 5819896-1 (Version None)
Quarter: 2008Q3

REPORT INFORMATION
  Report Type: 
  Country: None (occurrence: None)
  Receive Date: 20080717
  Receipt Date: 20080619
  Transmission Date: 20090109
  Serious: No
  Sender: FDA-Public Use
  Company Number: ADE#08-092

PATIENT
  Age: 93 Year
  Weight: 48.9885 kg

DRUGS (4)
  1. DIGOXIN [Suspect]
     Indication: CARDIAC FAILURE CONGESTIVE
     Dosage: 1 TABLET DAILY;
     Dates: start: 20080601
  2. FUROSEMIDE [Concomitant]
  3. NITROGLYCERIN [Concomitant]
  4. PLAVIX [Concomitant]

REACTIONS (1)
  - DIARRHOEA [None]
